FAERS Safety Report 7631772-0 (Version None)
Quarter: 2011Q3

REPORT INFORMATION
  Report Type: 
  Country: None (occurrence: None)
  Receive Date: 20110725
  Receipt Date: 20110310
  Transmission Date: 20111222
  Serious: No
  Sender: FDA-Public Use
  Company Number: US-BRISTOL-MYERS SQUIBB COMPANY-15601131

PATIENT
  Sex: Female

DRUGS (7)
  1. VITAMIN D [Concomitant]
     Dosage: 1DF:50000 U
     Dates: start: 20070101
  2. LEVOXYL [Concomitant]
     Route: 048
     Dates: start: 20071201
  3. CENTRUM SILVER [Concomitant]
     Route: 048
     Dates: start: 20100901
  4. COUMADIN [Suspect]
  5. METOPROLOL TARTRATE [Concomitant]
     Route: 048
     Dates: start: 20070601
  6. MULTAQ [Concomitant]
     Route: 048
     Dates: start: 20100901
  7. CITRACAL [Concomitant]
     Route: 048
     Dates: start: 20070101

REACTIONS (1)
  - HYPERSENSITIVITY [None]
